FAERS Safety Report 10045992 (Version 2)
Quarter: 2014Q1

REPORT INFORMATION
  Report Type: Spontaneous
  Country: US (occurrence: US)
  Receive Date: 20140330
  Receipt Date: 20140330
  Transmission Date: 20141002
  Serious: Yes (Other)
  Sender: FDA-Public Use
  Company Number: US-GE HEALTHCARE MEDICAL DIAGNOSTICS-OSCN-PR-0807S-0460

PATIENT
  Age: 47 Year
  Sex: Male

DRUGS (6)
  1. OMNISCAN [Suspect]
     Indication: PAIN IN EXTREMITY
     Route: 042
     Dates: start: 20040805, end: 20040805
  2. GADOLINIUM (UNSPECIFIED) [Suspect]
     Indication: PRODUCT USED FOR UNKNOWN INDICATION
     Route: 042
     Dates: start: 1998, end: 1998
  3. GADOLINIUM (UNSPECIFIED) [Suspect]
     Indication: MUSCULAR WEAKNESS
     Route: 042
     Dates: start: 2003, end: 2003
  4. GADOLINIUM (UNSPECIFIED) [Suspect]
     Route: 042
     Dates: start: 2004, end: 2004
  5. GADOLINIUM (UNSPECIFIED) [Suspect]
     Route: 042
     Dates: start: 20041110, end: 20041110
  6. GADOLINIUM (UNSPECIFIED) [Suspect]
     Route: 042
     Dates: start: 20041129, end: 20041129

REACTIONS (1)
  - Nephrogenic systemic fibrosis [Not Recovered/Not Resolved]
